FAERS Safety Report 11566791 (Version 1)
Quarter: 2015Q3

REPORT INFORMATION
  Report Type: Spontaneous
  Country: IT (occurrence: IT)
  Receive Date: 20150929
  Receipt Date: 20150929
  Transmission Date: 20151125
  Serious: Yes (Hospitalization)
  Sender: FDA-Public Use
  Company Number: IT-SUN PHARMACEUTICAL INDUSTRIES LTD-12SUNBA20P

PATIENT
  Age: 10 Year
  Sex: Female

DRUGS (4)
  1. BACLOFEN. [Suspect]
     Active Substance: BACLOFEN
     Indication: MUSCLE SPASTICITY
     Dosage: 1 MG/KG/DAY IN THREE DIVIDED DOSES
     Route: 048
  2. BACLOFEN. [Suspect]
     Active Substance: BACLOFEN
     Dosage: 2 MG/KG/D (60 MG/D) IN THREE DIVIDED DOSES
     Route: 048
  3. CARBAMAZEPINE. [Concomitant]
     Active Substance: CARBAMAZEPINE
     Indication: PARTIAL SEIZURES
     Dosage: 400 MG, QD
  4. BACLOFEN. [Suspect]
     Active Substance: BACLOFEN
     Dosage: 1 MG/KG/D
     Route: 048

REACTIONS (6)
  - Hypotonia [Recovered/Resolved]
  - Insomnia [Recovered/Resolved]
  - Agitation [Recovered/Resolved]
  - Electroencephalogram abnormal [Recovered/Resolved]
  - Confusional state [Recovered/Resolved]
  - Hyporeflexia [Recovered/Resolved]
